FAERS Safety Report 4527260-0 (Version None)
Quarter: 2004Q4

REPORT INFORMATION
  Report Type: 
  Country: None (occurrence: None)
  Receive Date: 20041130
  Receipt Date: 20040811
  Transmission Date: 20050328
  Serious: No
  Sender: FDA-Public Use
  Company Number: FABR-10724

PATIENT
  Age: 6 Year
  Sex: Male
  Weight: 21 kg

DRUGS (3)
  1. FABRAZYME [Suspect]
     Indication: FABRY'S DISEASE
     Dosage: 25 MG Q2WKS IV
     Route: 042
     Dates: start: 20040623
  2. MULTI-VITAMIN [Concomitant]
  3. ACETAMINOPHEN [Concomitant]

REACTIONS (3)
  - CHILLS [None]
  - HEADACHE [None]
  - THROAT IRRITATION [None]
